FAERS Safety Report 10155233 (Version 1)
Quarter: 2014Q2

REPORT INFORMATION
  Report Type: Spontaneous
  Country: US (occurrence: None)
  Receive Date: 20140505
  Receipt Date: 20140505
  Transmission Date: 20141212
  Serious: Yes (Other)
  Sender: FDA-Public Use
  Company Number: None

PATIENT
  Age: 40 Year
  Sex: Female
  Weight: 111.13 kg

DRUGS (2)
  1. MODAFINIL 200 MG TEVA [Suspect]
     Indication: NARCOLEPSY
     Dosage: IN THE MORNING
  2. MODAFINIL 200 MG TEVA [Suspect]
     Indication: SLEEP APNOEA SYNDROME
     Dosage: IN THE MORNING

REACTIONS (4)
  - Headache [None]
  - Hypoaesthesia oral [None]
  - Paraesthesia oral [None]
  - Drug ineffective [None]
